FAERS Safety Report 7626091-2 (Version None)
Quarter: 2011Q3

REPORT INFORMATION
  Report Type: 
  Country: None (occurrence: None)
  Receive Date: 20110701
  Receipt Date: 20101019
  Transmission Date: 20111222
  Serious: Yes (Other)
  Sender: FDA-Public Use
  Company Number: 7023379

PATIENT
  Age: 19 Year
  Sex: Male

DRUGS (3)
  1. VITAMIN D [Concomitant]
  2. MULTIVITAMIN (MULTIVITAMIN /00831701/) [Concomitant]
  3. REBIF [Suspect]
     Indication: PRODUCT USED FOR UNKNOWN INDICATION
     Dosage: 44 MCG, 3 IN 1 WK, SUBCUTANEOUS
     Route: 058
     Dates: start: 20100722, end: 20101018

REACTIONS (1)
  - LIVER FUNCTION TEST ABNORMAL [None]
